FAERS Safety Report 11059709 (Version 2)
Quarter: 2016Q1

REPORT INFORMATION
  Report Type: Spontaneous
  Country: DK (occurrence: CA)
  Receive Date: 20150423
  Receipt Date: 20160129
  Transmission Date: 20160525
  Serious: Yes (Other)
  Sender: FDA-Public Use
  Company Number: CA-FRI-1000076063

PATIENT
  Age: 62 Year
  Sex: Female

DRUGS (14)
  1. GABAPENTIN. [Suspect]
     Active Substance: GABAPENTIN
     Dosage: DOSE NOT REPORTED.
     Route: 065
  2. ZOPICLONE [Suspect]
     Active Substance: ZOPICLONE
     Indication: INSOMNIA
     Dosage: 15 MG ONCE DAILY AT NIGHT
     Route: 065
  3. CO ETIDROCAL [Suspect]
     Active Substance: CALCIUM CARBONATE\ETIDRONATE DISODIUM
     Indication: PRODUCT USED FOR UNKNOWN INDICATION
     Dosage: 500 MG
     Route: 065
     Dates: start: 2011
  4. IBUPROFEN. [Suspect]
     Active Substance: IBUPROFEN
     Indication: PRODUCT USED FOR UNKNOWN INDICATION
     Dosage: 100 MG
     Route: 065
     Dates: start: 2012
  5. CLORAZEPATE [Suspect]
     Active Substance: CLORAZEPATE DIPOTASSIUM
     Indication: ANXIETY DISORDER
     Dosage: 45 MG
     Route: 048
  6. ESOMEPRAZOLE [Suspect]
     Active Substance: ESOMEPRAZOLE
     Indication: PRODUCT USED FOR UNKNOWN INDICATION
     Dosage: 40 MG
     Route: 065
  7. TRAZODONE [Suspect]
     Active Substance: TRAZODONE HYDROCHLORIDE
     Indication: PRODUCT USED FOR UNKNOWN INDICATION
     Dosage: 50 MG ONCE DAILY AT BEDTIME
     Route: 065
     Dates: start: 2012
  8. VOLTAREN [Suspect]
     Active Substance: DICLOFENAC SODIUM
     Indication: INTERVERTEBRAL DISC DISORDER
  9. ESCITALOPRAM [Suspect]
     Active Substance: ESCITALOPRAM OXALATE
     Indication: PRODUCT USED FOR UNKNOWN INDICATION
     Dosage: 20 MG ONCE DAILY AT BEDTIME
     Route: 065
  10. MORPHINE [Suspect]
     Active Substance: MORPHINE
     Indication: PAIN
     Dosage: DOSE NOT REPORTED.
     Route: 065
     Dates: start: 2014
  11. BUPROPION HCL [Concomitant]
     Active Substance: BUPROPION HYDROCHLORIDE
     Indication: PRODUCT USED FOR UNKNOWN INDICATION
     Dosage: DOSE NOT REPORTED.
     Route: 065
  12. GABAPENTIN. [Suspect]
     Active Substance: GABAPENTIN
     Indication: TREMOR
     Dosage: DOSE NOT REPORTED.
     Route: 065
  13. VOLTAREN [Suspect]
     Active Substance: DICLOFENAC SODIUM
     Indication: ARTHRALGIA
     Dosage: 3 SQUEEZES ONCE OR TWICE A DAY AND AT NIGHT
     Route: 061
     Dates: start: 2011
  14. VOLTAREN [Suspect]
     Active Substance: DICLOFENAC SODIUM
     Indication: JOINT SWELLING

REACTIONS (28)
  - Intervertebral disc disorder [Not Recovered/Not Resolved]
  - Panic attack [Recovering/Resolving]
  - Therapeutic response changed [Unknown]
  - Chondropathy [Recovered/Resolved]
  - Cough [Not Recovered/Not Resolved]
  - Pain [Unknown]
  - Breath sounds abnormal [Not Recovered/Not Resolved]
  - Bronchitis [Recovered/Resolved]
  - Lymphoedema [Recovering/Resolving]
  - Fatigue [Recovering/Resolving]
  - Feeling of body temperature change [Not Recovered/Not Resolved]
  - Incorrect drug administration duration [Unknown]
  - Lymphoma [Recovered/Resolved]
  - Pneumonia [Not Recovered/Not Resolved]
  - Arthritis [Not Recovered/Not Resolved]
  - Fall [Recovered/Resolved]
  - Inappropriate schedule of drug administration [Unknown]
  - Motor dysfunction [Recovering/Resolving]
  - Therapeutic response decreased [Unknown]
  - Nausea [Recovered/Resolved]
  - Oedema peripheral [Recovering/Resolving]
  - Photopsia [Recovering/Resolving]
  - Respiratory arrest [Recovered/Resolved]
  - Tremor [Recovering/Resolving]
  - Alopecia [Recovering/Resolving]
  - Depression [Recovering/Resolving]
  - Hyperhidrosis [Not Recovered/Not Resolved]
  - Walking disability [Recovering/Resolving]

NARRATIVE: CASE EVENT DATE: 2011
